FAERS Safety Report 8062043-9 (Version None)
Quarter: 2012Q1

REPORT INFORMATION
  Report Type: 
  Country: None (occurrence: None)
  Receive Date: 20120123
  Receipt Date: 20120119
  Transmission Date: 20120608
  Serious: Yes (Hospitalization)
  Sender: FDA-Public Use
  Company Number: US-BAYER-2011-109301

PATIENT
  Age: 40 Year
  Sex: Female
  Weight: 76 kg

DRUGS (3)
  1. DESOGEN [Concomitant]
     Dosage: UNK
     Dates: start: 20091111, end: 20100502
  2. SPIRONOLACTONE [Concomitant]
     Dosage: 50 MG, UNK
  3. YAZ [Suspect]
     Indication: MENSTRUATION IRREGULAR
     Dosage: UNK
     Dates: start: 20100502, end: 20111110

REACTIONS (3)
  - DYSPNOEA [None]
  - CHEST DISCOMFORT [None]
  - PULMONARY EMBOLISM [None]
